FAERS Safety Report 18789253 (Version 1)
Quarter: 2021Q1

REPORT INFORMATION
  Report Type: Spontaneous
  Country: US (occurrence: US)
  Receive Date: 20210126
  Receipt Date: 20210126
  Transmission Date: 20210419
  Serious: No
  Sender: FDA-Public Use
  Company Number: US-TAKEDA-2021TUS003731

PATIENT
  Sex: Male
  Weight: 81.63 kg

DRUGS (14)
  1. AMLODIPINE;ATORVASTATIN [Concomitant]
  2. ACETAMINOPHEN + COD. PHOSP. [Concomitant]
     Active Substance: ACETAMINOPHEN\CODEINE PHOSPHATE
  3. LIDOCAINE ACCORD [Concomitant]
  4. EPINEPHRINE. [Concomitant]
     Active Substance: EPINEPHRINE
  5. DIPHENHYDRAMINE ACEFYLLINATE [Concomitant]
  6. METHYLPREDNISOLONE. [Concomitant]
     Active Substance: METHYLPREDNISOLONE
  7. SODIUM CHLORIDE. [Concomitant]
     Active Substance: SODIUM CHLORIDE
  8. NORMAL SALINE [Concomitant]
     Active Substance: SODIUM CHLORIDE
  9. ADVANCED ASPIRIN [Concomitant]
  10. OLMESARTAN MEDOXOMIL, AMLODIPINE AND HYDROCHLOROTHIAZIDE [Concomitant]
     Active Substance: AMLODIPINE\HYDROCHLOROTHIAZIDE\OLMESARTAN
  11. LEXAPRO [Concomitant]
     Active Substance: ESCITALOPRAM OXALATE
  12. METHOTREXATE ACCORD [Concomitant]
     Active Substance: METHOTREXATE
  13. FOLIC ACID. [Concomitant]
     Active Substance: FOLIC ACID
  14. GAMMAGARD LIQUID [Suspect]
     Active Substance: HUMAN IMMUNOGLOBULIN G
     Indication: PRODUCT USED FOR UNKNOWN INDICATION
     Dosage: 25 GRAM, 1/WEEK FOR 3EEKS
     Route: 042
     Dates: start: 20200706

REACTIONS (2)
  - Blood pressure abnormal [Unknown]
  - Infusion related reaction [Unknown]
